FAERS Safety Report 19717518 (Version 3)
Quarter: 2021Q3

REPORT INFORMATION
  Report Type: Report from Study
  Country: None (occurrence: IL)
  Receive Date: 20210819
  Receipt Date: 20210914
  Transmission Date: 20211014
  Serious: Yes (Death, Hospitalization, Other)
  Sender: FDA-Public Use
  Company Number: IL-ABBVIE-21K-082-4027727-00

PATIENT
  Age: 54 Year
  Sex: Female

DRUGS (2)
  1. DUODOPA [Suspect]
     Active Substance: CARBIDOPA\LEVODOPA
  2. DUODOPA [Suspect]
     Active Substance: CARBIDOPA\LEVODOPA
     Indication: PARKINSON^S DISEASE
     Dosage: MD(ML)  6.0, CD (ML/H)  2.3, ED (ML)  1.0, 20 MG/ML 5 MG/ML
     Route: 050
     Dates: start: 20210406, end: 20210804

REACTIONS (6)
  - General physical health deterioration [Not Recovered/Not Resolved]
  - Motor dysfunction [Unknown]
  - Pneumonia [Fatal]
  - Asthenia [Unknown]
  - Abnormal behaviour [Unknown]
  - Dysphagia [Not Recovered/Not Resolved]

NARRATIVE: CASE EVENT DATE: 2021
